FAERS Safety Report 11627003 (Version 1)
Quarter: 2015Q4

REPORT INFORMATION
  Report Type: Spontaneous
  Country: US (occurrence: None)
  Receive Date: 20151013
  Receipt Date: 20151013
  Transmission Date: 20160304
  Serious: Yes (Life-Threatening, Hospitalization, Other)
  Sender: FDA-Public Use
  Company Number: US-MDT-ADR-2015-01950

PATIENT
  Age: 66 Year
  Sex: Male

DRUGS (2)
  1. MOPRHINE INTRATHECAL [Suspect]
     Active Substance: MORPHINE
  2. COMPOUNDED BACLOFEN INTRATHECAL [Suspect]
     Active Substance: BACLOFEN

REACTIONS (12)
  - Suicidal ideation [None]
  - Dyskinesia [None]
  - Formication [None]
  - Tremor [None]
  - Insomnia [None]
  - Overdose [None]
  - Device occlusion [None]
  - Intercepted medication error [None]
  - Respiratory arrest [None]
  - Restless legs syndrome [None]
  - Muscle twitching [None]
  - Drug withdrawal syndrome [None]
